FAERS Safety Report 22166795 (Version 1)
Quarter: 2023Q2

REPORT INFORMATION
  Report Type: Spontaneous
  Country: JP (occurrence: JP)
  Receive Date: 20230403
  Receipt Date: 20230403
  Transmission Date: 20230722
  Serious: Yes (Hospitalization)
  Sender: FDA-Public Use
  Company Number: JP-PFIZER INC-PV202300057211

PATIENT
  Age: 77 Year
  Sex: Female

DRUGS (2)
  1. METHOTREXATE SODIUM [Suspect]
     Active Substance: METHOTREXATE SODIUM
     Indication: Rheumatoid arthritis
     Dosage: 8 MG, WEEKLY
  2. PEFICITINIB [Suspect]
     Active Substance: PEFICITINIB
     Indication: Rheumatoid arthritis
     Dosage: 150 MG, DAILY

REACTIONS (4)
  - Immune reconstitution inflammatory syndrome [Unknown]
  - Cytomegalovirus viraemia [Unknown]
  - Pneumocystis jirovecii pneumonia [Unknown]
  - Epstein-Barr viraemia [Unknown]
